FAERS Safety Report 7632391-2 (Version None)
Quarter: 2011Q3

REPORT INFORMATION
  Report Type: 
  Country: None (occurrence: None)
  Receive Date: 20110725
  Receipt Date: 20100819
  Transmission Date: 20111222
  Serious: No
  Sender: FDA-Public Use
  Company Number: US-BRISTOL-MYERS SQUIBB COMPANY-15247828

PATIENT
  Age: 84 Year
  Sex: Female
  Weight: 59 kg

DRUGS (2)
  1. WARFARIN SODIUM [Suspect]
  2. CRANBERRY JUICE [Suspect]

REACTIONS (1)
  - BLOOD VISCOSITY INCREASED [None]
